FAERS Safety Report 5949861-5 (Version None)
Quarter: 2008Q4

REPORT INFORMATION
  Report Type: 
  Country: None (occurrence: None)
  Receive Date: 20081112
  Receipt Date: 20081103
  Transmission Date: 20090506
  Serious: Yes (Other)
  Sender: FDA-Public Use
  Company Number: DK-BAYER-200829967GPV

PATIENT

DRUGS (2)
  1. NEXAVAR [Suspect]
     Indication: DRUG USE FOR UNKNOWN INDICATION
     Route: 048
  2. NEXAVAR [Suspect]
     Route: 048
     Dates: start: 20080101

REACTIONS (1)
  - RENAL FAILURE [None]
